FAERS Safety Report 23875623 (Version 1)
Quarter: 2024Q2

REPORT INFORMATION
  Report Type: Spontaneous
  Country: US (occurrence: US)
  Receive Date: 20240520
  Receipt Date: 20240520
  Transmission Date: 20240716
  Serious: Yes (Hospitalization, Other)
  Sender: FDA-Public Use
  Company Number: US-GILEAD-2024-0673264

PATIENT
  Age: 58 Year
  Sex: Female
  Weight: 101.4 kg

DRUGS (1)
  1. YESCARTA [Suspect]
     Active Substance: AXICABTAGENE CILOLEUCEL
     Indication: Diffuse large B-cell lymphoma
     Dosage: UNK
     Route: 042
     Dates: start: 20200324, end: 20200324

REACTIONS (11)
  - Haemoperitoneum [Unknown]
  - Retroperitoneal haematoma [Unknown]
  - Papilloedema [Unknown]
  - Febrile neutropenia [Unknown]
  - Neurotoxicity [Unknown]
  - Seizure [Unknown]
  - Clostridium test positive [Unknown]
  - Confusional state [Unknown]
  - Headache [Unknown]
  - Incoherent [Unknown]
  - Tachypnoea [Unknown]

NARRATIVE: CASE EVENT DATE: 20200324
